FAERS Safety Report 13458409 (Version 2)
Quarter: 2017Q2

REPORT INFORMATION
  Report Type: Spontaneous
  Country: US (occurrence: US)
  Receive Date: 20170419
  Receipt Date: 20170530
  Transmission Date: 20170830
  Serious: Yes (Other)
  Sender: FDA-Public Use
  Company Number: US-AKORN PHARMACEUTICALS-2017AKN00446

PATIENT
  Sex: Male
  Weight: 132.43 kg

DRUGS (8)
  1. MYORISAN [Suspect]
     Active Substance: ISOTRETINOIN
     Indication: CHLORACNE
     Dosage: 40 MG, 1X/DAY
     Dates: start: 20170306, end: 201703
  2. ZYRTEC [Concomitant]
     Active Substance: CETIRIZINE HYDROCHLORIDE
  3. ALBUTEROL MDI [Concomitant]
     Active Substance: ALBUTEROL
  4. NAPROXEN. [Concomitant]
     Active Substance: NAPROXEN
  5. MYORISAN [Suspect]
     Active Substance: ISOTRETINOIN
     Indication: CHLORACNE
     Dosage: 20 MG, 1X/DAY
     Dates: start: 201702, end: 201703
  6. LASIX [Concomitant]
     Active Substance: FUROSEMIDE
  7. METOPROLOL. [Concomitant]
     Active Substance: METOPROLOL
  8. EFFEXOR [Concomitant]
     Active Substance: VENLAFAXINE HYDROCHLORIDE

REACTIONS (2)
  - Mood altered [Recovered/Resolved]
  - Depression [Recovered/Resolved]

NARRATIVE: CASE EVENT DATE: 2017
